FAERS Safety Report 11177327 (Version 1)
Quarter: 2015Q2

REPORT INFORMATION
  Report Type: Spontaneous
  Country: US (occurrence: None)
  Receive Date: 20150608
  Receipt Date: 20150608
  Transmission Date: 20150821
  Serious: Yes (Hospitalization)
  Sender: FDA-Public Use
  Company Number: None

PATIENT
  Age: 82 Year
  Sex: Male
  Weight: 105.24 kg

DRUGS (12)
  1. LOVTHYROXIN [Concomitant]
  2. VITAMIN B12 [Concomitant]
     Active Substance: CYANOCOBALAMIN
  3. POTASIUM [Concomitant]
  4. BENICAR [Concomitant]
     Active Substance: OLMESARTAN MEDOXOMIL
  5. NESINA [Concomitant]
     Active Substance: ALOGLIPTIN BENZOATE
  6. MAGNESIUM [Concomitant]
     Active Substance: MAGNESIUM
  7. METOPROLOL [Suspect]
     Active Substance: METOPROLOL
     Indication: BLOOD PRESSURE
     Route: 048
  8. CHROMIUM [Concomitant]
     Active Substance: CHROMIC CHLORIDE\CHROMIUM
  9. CRESTOR [Concomitant]
     Active Substance: ROSUVASTATIN CALCIUM
  10. FISH OIL [Concomitant]
     Active Substance: FISH OIL
  11. D3 [Concomitant]
     Active Substance: 25-HYDROXYCHOLECALCIFEROL, 5-TRANS-
  12. METFORMIN [Concomitant]
     Active Substance: METFORMIN HYDROCHLORIDE

REACTIONS (5)
  - Swelling [None]
  - Dizziness [None]
  - Heart rate decreased [None]
  - Bradycardia [None]
  - Atrioventricular block [None]

NARRATIVE: CASE EVENT DATE: 20150521
